FAERS Safety Report 6460734-4 (Version None)
Quarter: 2009Q4

REPORT INFORMATION
  Report Type: 
  Country: None (occurrence: None)
  Receive Date: 20091125
  Receipt Date: 20091125
  Transmission Date: 20100525
  Serious: Yes (Other)
  Sender: FDA-Public Use
  Company Number: None

PATIENT
  Sex: Male
  Weight: 22.3 kg

DRUGS (1)
  1. DAPSONE [Suspect]
     Indication: INFECTION PROPHYLAXIS
     Dosage: 50 MG DAILY PO
     Route: 048
     Dates: start: 20091008, end: 20091119

REACTIONS (1)
  - METHAEMOGLOBINAEMIA [None]
